FAERS Safety Report 6809444-1 (Version None)
Quarter: 2010Q2

REPORT INFORMATION
  Report Type: 
  Country: None (occurrence: None)
  Receive Date: 20100630
  Receipt Date: 20100618
  Transmission Date: 20101027
  Serious: Yes (Hospitalization)
  Sender: FDA-Public Use
  Company Number: CA-JNJFOC-20100607050

PATIENT
  Age: 70 Year
  Sex: Female

DRUGS (2)
  1. REMICADE [Suspect]
     Indication: RHEUMATOID ARTHRITIS
     Dosage: ON DRUG 6 YEARS
     Route: 042
  2. METHOTREXATE [Concomitant]

REACTIONS (2)
  - CAROTID SINUS SYNDROME [None]
  - PRESYNCOPE [None]
